FAERS Safety Report 17925501 (Version 1)
Quarter: 2020Q2

REPORT INFORMATION
  Report Type: Spontaneous
  Country: US (occurrence: US)
  Receive Date: 20200622
  Receipt Date: 20200622
  Transmission Date: 20200714
  Serious: No
  Sender: FDA-Public Use
  Company Number: US-TAKEDA-2020TUS027258

PATIENT
  Sex: Male

DRUGS (2)
  1. VELCADE [Suspect]
     Active Substance: BORTEZOMIB
     Dosage: 2.6 MILLIGRAM
     Route: 058
     Dates: start: 20200619
  2. VELCADE [Suspect]
     Active Substance: BORTEZOMIB
     Indication: PLASMA CELL MYELOMA
     Dosage: 3.3 MILLIGRAM
     Route: 058
     Dates: start: 20200305

REACTIONS (1)
  - Neuropathy peripheral [Unknown]
